FAERS Safety Report 8655058 (Version 2)
Quarter: 2012Q4

REPORT INFORMATION
  Report Type: 
  Country: US (occurrence: US)
  Receive Date: 20120709
  Receipt Date: 20120925
  Transmission Date: 20130627
  Serious: No
  Sender: FDA-Public Use
  Company Number: US-JNJFOC-20120702612

PATIENT
  Age: 34 None
  Sex: Female

DRUGS (6)
  1. INVEGA SUSTENNA [Suspect]
     Indication: SCHIZOPHRENIA
     Route: 030
     Dates: start: 20120405, end: 20120701
  2. BUPROPION [Concomitant]
     Indication: ENERGY INCREASED
     Route: 065
     Dates: start: 201203
  3. BUPROPION [Concomitant]
     Indication: DEPRESSION
     Route: 065
     Dates: start: 201203
  4. LAMOTRIGINE [Concomitant]
     Indication: MOOD SWINGS
     Route: 065
     Dates: start: 201203
  5. BENZTROPINE [Concomitant]
     Indication: PRODUCT USED FOR UNKNOWN INDICATION
     Route: 065
  6. UNKNOWN MEDICATION [Concomitant]
     Indication: ANXIETY
     Dosage: as necessary
     Route: 065

REACTIONS (2)
  - Fatigue [Unknown]
  - Asthenia [Unknown]
